FAERS Safety Report 9921390 (Version 5)
Quarter: 2019Q4

REPORT INFORMATION
  Report Type: Report from Study
  Country: US (occurrence: US)
  Receive Date: 20140225
  Receipt Date: 20191002
  Transmission Date: 20200122
  Serious: Yes (Hospitalization, Other)
  Sender: FDA-Public Use
  Company Number: US-SA-2014SA022299

PATIENT
  Age: 63 Year
  Sex: Female
  Weight: 110 kg

DRUGS (2)
  1. IMIGLUCERASE [Suspect]
     Active Substance: IMIGLUCERASE
     Dosage: 6000.00 Q2
     Route: 041
     Dates: start: 20110525
  2. IMIGLUCERASE [Suspect]
     Active Substance: IMIGLUCERASE
     Indication: GAUCHER^S DISEASE
     Dosage: 50.9 MG/KG,QOW
     Route: 041
     Dates: start: 20051017

REACTIONS (8)
  - Swelling face [Unknown]
  - Hospitalisation [Unknown]
  - Colon neoplasm [Unknown]
  - Cataract [Recovering/Resolving]
  - Cardiovascular disorder [Not Recovered/Not Resolved]
  - Pain [Not Recovered/Not Resolved]
  - Ocular hyperaemia [Unknown]
  - Fatigue [Unknown]

NARRATIVE: CASE EVENT DATE: 201402
